FAERS Safety Report 17611284 (Version 1)
Quarter: 2020Q2

REPORT INFORMATION
  Report Type: Spontaneous
  Country: US (occurrence: US)
  Receive Date: 20200401
  Receipt Date: 20200401
  Transmission Date: 20200713
  Serious: Yes (Life-Threatening)
  Sender: FDA-Public Use
  Company Number: US-AMNEAL PHARMACEUTICALS-2020-AMRX-00965

PATIENT
  Age: 15 Year
  Sex: Male

DRUGS (2)
  1. RISPERIDONE. [Suspect]
     Active Substance: RISPERIDONE
     Indication: PRODUCT USED FOR UNKNOWN INDICATION
     Dosage: UNK
     Route: 065
  2. RISPERIDONE. [Suspect]
     Active Substance: RISPERIDONE
     Dosage: INCREASED DOSE
     Route: 065

REACTIONS (5)
  - Hypothermia [Unknown]
  - Encephalopathy [Unknown]
  - Respiratory failure [Recovered/Resolved]
  - Multiple organ dysfunction syndrome [Unknown]
  - Cardiac arrest [Recovered/Resolved]
